FAERS Safety Report 10481916 (Version 2)
Quarter: 2014Q3

REPORT INFORMATION
  Report Type: Report from Study
  Country: BR (occurrence: BR)
  Receive Date: 20140929
  Receipt Date: 20140929
  Transmission Date: 20150326
  Serious: Yes (Other)
  Sender: FDA-Public Use
  Company Number: PHHY2013BR020514

PATIENT
  Sex: Female

DRUGS (9)
  1. VALERIANA OFFICINALIS ROOT [Concomitant]
     Active Substance: VALERIAN
     Indication: DEPRESSION
     Dosage: 1 TABLET (50 MG) PER DAY
     Route: 048
     Dates: start: 2007
  2. EMAMA [Concomitant]
     Active Substance: .ALPHA.-TOCOPHEROL ACETATE
     Indication: VITAMIN SUPPLEMENTATION
     Dosage: 1 DF, PER DAY
     Route: 048
     Dates: start: 2007
  3. PANTOPRAZOLE SODIUM [Concomitant]
     Active Substance: PANTOPRAZOLE SODIUM
     Indication: GASTRIC DISORDER
     Dosage: 1 TABLET (40 MG) IN THE MORNING AND 1 TABLET (20 MG) AT NIGHT
     Route: 048
     Dates: start: 2008
  4. DIOVAN HCT [Suspect]
     Active Substance: HYDROCHLOROTHIAZIDE\VALSARTAN
     Indication: HYPERTENSION
     Dosage: 1 DF, (320 MG VALS AND 25 MG HCTZ) PER DAY
     Route: 048
     Dates: start: 2007
  5. SYNTHROID [Concomitant]
     Active Substance: LEVOTHYROXINE SODIUM
     Indication: HORMONE REPLACEMENT THERAPY
     Dosage: 1 DF (125 MG), QD (IN FASTING)
     Route: 048
     Dates: start: 200708
  6. PONDERA [Concomitant]
     Active Substance: PAROXETINE HYDROCHLORIDE
     Indication: DEPRESSION
     Dosage: 1 TABLET (25 MG), QD (AT NIGHT BEFORE SLEEP)
     Route: 048
  7. ADDERA D3 [Concomitant]
     Active Substance: CHOLECALCIFEROL
     Indication: MINERAL SUPPLEMENTATION
     Dosage: 1 TABLET, PER DAY
     Route: 048
     Dates: start: 201408
  8. DEPURA [Concomitant]
     Active Substance: CHOLECALCIFEROL
     Indication: MINERAL SUPPLEMENTATION
     Dosage: 10 DRP, QD (IN LUNCH)
     Route: 048
     Dates: end: 201408
  9. GLIFAGE [Concomitant]
     Active Substance: METFORMIN HYDROCHLORIDE
     Indication: DIABETES MELLITUS
     Dosage: 1 TABLET (500 MG), QD (AT LUNCH, IF NEEDED)
     Route: 048

REACTIONS (6)
  - Haemorrhage [Recovered/Resolved]
  - Hepatic steatosis [Not Recovered/Not Resolved]
  - Muscle spasms [Not Recovered/Not Resolved]
  - Thyroiditis [Recovered/Resolved]
  - Vomiting [Recovered/Resolved]
  - Cardiac arrest [Recovered/Resolved]
